FAERS Safety Report 17834156 (Version 3)
Quarter: 2020Q3

REPORT INFORMATION
  Report Type: Spontaneous
  Country: NL (occurrence: NL)
  Receive Date: 20200528
  Receipt Date: 20200814
  Transmission Date: 20201103
  Serious: Yes (Death, Hospitalization)
  Sender: FDA-Public Use
  Company Number: NL-ACTELION-A-CH2020-205421

PATIENT
  Sex: Female

DRUGS (5)
  1. UPTRAVI [Suspect]
     Active Substance: SELEXIPAG
     Indication: INTERLEUKIN THERAPY
     Dosage: 200 MCG, BID
     Route: 048
  2. OPSUMIT [Suspect]
     Active Substance: MACITENTAN
     Indication: INTERLEUKIN THERAPY
     Dosage: 10 MG, QD
     Route: 048
  3. ADCIRCA [Concomitant]
     Active Substance: TADALAFIL
     Dosage: 20 MG, QD
  4. NANOGRAM [Concomitant]
     Dosage: 100 MG/ML, Q3WEEK  (CONCENTRATION 200 MG/ML)
  5. NANOGRAM [Concomitant]
     Dosage: 100 MG/ML, Q3WEEK (CONCENTRATION 200 MG/ML)

REACTIONS (3)
  - Death [Fatal]
  - Urinary tract infection [Unknown]
  - Hospitalisation [Unknown]
